FAERS Safety Report 8268649-6 (Version None)
Quarter: 2012Q2

REPORT INFORMATION
  Report Type: 
  Country: None (occurrence: None)
  Receive Date: 20120409
  Receipt Date: 20120329
  Transmission Date: 20120825
  Serious: Yes (Hospitalization)
  Sender: FDA-Public Use
  Company Number: US-ELI_LILLY_AND_COMPANY-US201111005646

PATIENT
  Sex: Female

DRUGS (3)
  1. FORTEO [Suspect]
     Dosage: 20 UG, QD
  2. FORTEO [Suspect]
     Dosage: 20 UG, QD
  3. FORTEO [Suspect]
     Indication: OSTEOPOROSIS
     Dosage: 20 UG, QD
     Dates: start: 20110801

REACTIONS (8)
  - HIP FRACTURE [None]
  - FALL [None]
  - HIP SURGERY [None]
  - HAND FRACTURE [None]
  - IMPAIRED HEALING [None]
  - BALANCE DISORDER [None]
  - DEVICE ISSUE [None]
  - JOINT INJURY [None]
